FAERS Safety Report 15158251 (Version 1)
Quarter: 2018Q3

REPORT INFORMATION
  Report Type: Report from Study
  Country: AU (occurrence: AU)
  Receive Date: 20180718
  Receipt Date: 20180718
  Transmission Date: 20181010
  Serious: Yes (Life-Threatening, Other)
  Sender: FDA-Public Use
  Company Number: AU-MYLANLABS-2018M1050434

PATIENT
  Age: 70 Year
  Sex: Male

DRUGS (1)
  1. EMTRICITABINE/TENOFOVIR DISOPROXIL FUMARATE [Suspect]
     Active Substance: EMTRICITABINE\TENOFOVIR DISOPROXIL FUMARATE
     Indication: PROPHYLAXIS AGAINST HIV INFECTION
     Dosage: 200MG EMTRICITABINE AND 300MG OF TENOFOVIR
     Route: 048

REACTIONS (2)
  - Acute myocardial infarction [None]
  - Myocardial infarction [Unknown]

NARRATIVE: CASE EVENT DATE: 20180518
